FAERS Safety Report 5301496-3 (Version None)
Quarter: 2007Q2

REPORT INFORMATION
  Report Type: 
  Country: None (occurrence: None)
  Receive Date: 20070412
  Receipt Date: 20070403
  Transmission Date: 20071010
  Serious: Yes (Hospitalization)
  Sender: FDA-Public Use
  Company Number: PERC20070015

PATIENT
  Age: 54 Year
  Sex: Male

DRUGS (4)
  1. PERCOCET [Suspect]
     Indication: NEOPLASM MALIGNANT
     Dosage: PER ORAL
     Route: 048
     Dates: start: 20060124
  2. OXYCONTIN [Suspect]
     Indication: NEOPLASM MALIGNANT
     Dosage: 80 MG / DAY, PER ORAL
     Route: 048
     Dates: start: 20060124
  3. PAZOPANIB [Concomitant]
  4. PAZOPANIB [Concomitant]

REACTIONS (9)
  - ABDOMINAL PAIN [None]
  - ANAEMIA [None]
  - CONSTIPATION [None]
  - DYSURIA [None]
  - FAECALOMA [None]
  - METASTASES TO BONE [None]
  - PAIN IN JAW [None]
  - PROCTALGIA [None]
  - TREATMENT NONCOMPLIANCE [None]
